FAERS Safety Report 4767219-1 (Version None)
Quarter: 2005Q3

REPORT INFORMATION
  Report Type: 
  Country: None (occurrence: None)
  Receive Date: 20050913
  Receipt Date: 20050908
  Transmission Date: 20060218
  Serious: Yes (Other)
  Sender: FDA-Public Use
  Company Number: PHBS2005PT13126

PATIENT
  Age: 72 Year
  Sex: Female
  Weight: 55 kg

DRUGS (6)
  1. FLUOXETINE [Concomitant]
     Dosage: 20 MG/D
     Route: 048
  2. TRIMETAZIDINE [Concomitant]
     Dosage: 20 MG/D
     Route: 048
  3. ALPRAZOLAM [Concomitant]
     Dosage: 0.25 MG/D
     Route: 048
  4. LACTULOSE [Concomitant]
     Route: 048
  5. FULVESTRANT [Concomitant]
     Dosage: 250 MG, QMO
     Route: 030
     Dates: start: 20021201
  6. ZOLEDRONIC ACID [Suspect]
     Indication: METASTASES TO BONE
     Dosage: UNK, UNK
     Route: 065
     Dates: start: 20020101, end: 20050701

REACTIONS (3)
  - ASEPTIC NECROSIS BONE [None]
  - OSTEOMYELITIS [None]
  - OSTEONECROSIS [None]
